FAERS Safety Report 25976948 (Version 1)
Quarter: 2025Q4

REPORT INFORMATION
  Report Type: Spontaneous
  Country: US (occurrence: US)
  Receive Date: 20251030
  Receipt Date: 20251030
  Transmission Date: 20260117
  Serious: Yes (Life-Threatening, Hospitalization, Other)
  Sender: LUPIN
  Company Number: None

PATIENT
  Age: 11 Year
  Sex: Male

DRUGS (6)
  1. GABAPENTIN [Interacting]
     Active Substance: GABAPENTIN
     Indication: Seizure
     Dosage: UNK
     Route: 065
  2. SEVOFLURANE [Interacting]
     Active Substance: SEVOFLURANE
     Indication: Induction of anaesthesia
     Dosage: UNK
     Route: 065
  3. PROPOFOL [Interacting]
     Active Substance: PROPOFOL
     Indication: Induction of anaesthesia
     Dosage: UNK
  4. FENTANYL [Interacting]
     Active Substance: FENTANYL
     Indication: Induction of anaesthesia
     Dosage: UNK
  5. ROCURONIUM [Interacting]
     Active Substance: ROCURONIUM BROMIDE
     Indication: Induction of anaesthesia
     Dosage: UNK
  6. KETAMINE [Interacting]
     Active Substance: KETAMINE
     Indication: Induction of anaesthesia
     Dosage: UNK

REACTIONS (4)
  - Toxicity to various agents [Unknown]
  - Cardiac arrest [Recovered/Resolved]
  - Drug interaction [Unknown]
  - Stress cardiomyopathy [Recovered/Resolved]
